FAERS Safety Report 10597733 (Version 2)
Quarter: 2015Q2

REPORT INFORMATION
  Report Type: Spontaneous
  Country: US (occurrence: None)
  Receive Date: 20141119
  Receipt Date: 20150506
  Transmission Date: 20150821
  Serious: Yes (Hospitalization, Other)
  Sender: FDA-Public Use
  Company Number: ADR-2014-02148

PATIENT
  Age: 66 Year
  Sex: Male

DRUGS (1)
  1. BACLOFEN INTRATHECAL [Suspect]
     Active Substance: BACLOFEN
     Indication: MUSCLE SPASTICITY

REACTIONS (7)
  - Cerebrovascular accident [None]
  - Diarrhoea [None]
  - Clostridium difficile infection [None]
  - Gastroenteritis viral [None]
  - International normalised ratio decreased [None]
  - Malaise [None]
  - Post procedural infection [None]
